FAERS Safety Report 14623331 (Version 3)
Quarter: 2018Q2

REPORT INFORMATION
  Report Type: Spontaneous
  Country: JP (occurrence: JP)
  Receive Date: 20180312
  Receipt Date: 20180521
  Transmission Date: 20180711
  Serious: Yes (Hospitalization, Other)
  Sender: FDA-Public Use
  Company Number: JP-SUN PHARMACEUTICAL INDUSTRIES LTD-2018R1-165186

PATIENT
  Age: 43 Year
  Sex: Female
  Weight: 53.4 kg

DRUGS (5)
  1. FLUOROURACIL. [Suspect]
     Active Substance: FLUOROURACIL
     Indication: BREAST CANCER STAGE III
     Dosage: 700 MG/BODY
     Route: 065
  2. DOCETAXEL. [Suspect]
     Active Substance: DOCETAXEL
     Indication: BREAST CANCER STAGE III
     Dosage: 110 MG/BODY
     Route: 065
  3. EPIRUBICIN [Suspect]
     Active Substance: EPIRUBICIN
     Indication: BREAST CANCER STAGE III
     Dosage: 140 MG/BODY
     Route: 065
  4. TRASTUZUMAB. [Suspect]
     Active Substance: TRASTUZUMAB
     Indication: BREAST CANCER STAGE III
     Dosage: 300 MG/ BODY
     Route: 065
  5. CYCLOPHOSPHAMIDE. [Suspect]
     Active Substance: CYCLOPHOSPHAMIDE
     Indication: BREAST CANCER STAGE III
     Dosage: 700 MG/BODY
     Route: 065

REACTIONS (3)
  - Bone marrow failure [Recovering/Resolving]
  - Peritoneal abscess [Unknown]
  - Appendicitis [Unknown]
